FAERS Safety Report 7099943-2 (Version None)
Quarter: 2010Q4

REPORT INFORMATION
  Report Type: 
  Country: None (occurrence: None)
  Receive Date: 20101104
  Receipt Date: 20101019
  Transmission Date: 20110411
  Serious: Yes (Other)
  Sender: FDA-Public Use
  Company Number: AMAG201000377

PATIENT
  Age: 83 Year
  Sex: Male
  Weight: 76.2 kg

DRUGS (16)
  1. FERAHEME [Suspect]
     Indication: IRON DEFICIENCY ANAEMIA
     Dosage: 510 MG, SINGLE, INTRAVENOUS, 510 MG, SINGLE, INTRAVENOUS
     Route: 042
     Dates: start: 20101006, end: 20101006
  2. FERAHEME [Suspect]
     Indication: IRON DEFICIENCY ANAEMIA
     Dosage: 510 MG, SINGLE, INTRAVENOUS, 510 MG, SINGLE, INTRAVENOUS
     Route: 042
     Dates: start: 20101014, end: 20101014
  3. ASPIRIN [Concomitant]
  4. CARVEDILOL [Concomitant]
  5. COLCHICINE [Concomitant]
  6. COUMADIN SODIUM (WARFARIN SODIUM) [Concomitant]
  7. ISOSORBIDE MONONITRATE XR (ISOSORBIDE MONONITRATE) [Concomitant]
  8. KLOR-CON [Concomitant]
  9. LIPITOR [Concomitant]
  10. METOLAZONE [Concomitant]
  11. MULTIVITAMIN (MULTIVITAMIN) [Concomitant]
  12. OCUVITE (ASCORBIC ACID, BETACAROTENE, COPPER, TOCOFERSOLAN, ZINC) [Concomitant]
  13. PRORENAL (LIMAPROST) [Concomitant]
  14. TORSEMIDE [Concomitant]
  15. ZEMPLAR (PARICALCITROL) [Concomitant]
  16. SOYA LECITHIN (PHOSPHOLIPIDS) [Concomitant]

REACTIONS (11)
  - AMNESIA [None]
  - ASTHENIA [None]
  - ATRIAL FLUTTER [None]
  - BLOOD CREATININE INCREASED [None]
  - BLOOD GLUCOSE INCREASED [None]
  - ERYTHEMA [None]
  - HAEMOGLOBIN DECREASED [None]
  - MUSCULOSKELETAL STIFFNESS [None]
  - RESPIRATORY ARREST [None]
  - SYNCOPE [None]
  - UNRESPONSIVE TO STIMULI [None]
